FAERS Safety Report 19234416 (Version 1)
Quarter: 2021Q2

REPORT INFORMATION
  Report Type: Spontaneous
  Country: US (occurrence: US)
  Receive Date: 20210508
  Receipt Date: 20210508
  Transmission Date: 20210717
  Serious: No
  Sender: FDA-Public Use
  Company Number: US-SA-2021SA141109

PATIENT
  Sex: Female

DRUGS (2)
  1. TOUJEO [Suspect]
     Active Substance: INSULIN GLARGINE
     Indication: TYPE 2 DIABETES MELLITUS
     Dosage: 158 IU, QD
  2. TRESIBA [Suspect]
     Active Substance: INSULIN DEGLUDEC

REACTIONS (2)
  - Urticaria [Unknown]
  - Contusion [Unknown]
